FAERS Safety Report 7645633-4 (Version None)
Quarter: 2011Q3

REPORT INFORMATION
  Report Type: 
  Country: None (occurrence: None)
  Receive Date: 20110729
  Receipt Date: 20110720
  Transmission Date: 20111222
  Serious: Yes (Hospitalization)
  Sender: FDA-Public Use
  Company Number: PHHY2011FR65490

PATIENT
  Sex: Male

DRUGS (4)
  1. CARBOPLATIN [Concomitant]
  2. FLUOROURACIL [Suspect]
     Indication: NEOPLASM MALIGNANT
     Dosage: 50 MG/ML, UNK
     Route: 042
     Dates: start: 20110630
  3. TAXOTERE [Concomitant]
  4. TENORMIN [Concomitant]

REACTIONS (2)
  - RADIATION MUCOSITIS [None]
  - FEBRILE NEUTROPENIA [None]
